FAERS Safety Report 7350613-2 (Version None)
Quarter: 2011Q1

REPORT INFORMATION
  Report Type: 
  Country: None (occurrence: None)
  Receive Date: 20110314
  Receipt Date: 20110304
  Transmission Date: 20110831
  Serious: Yes (Other)
  Sender: FDA-Public Use
  Company Number: US-GILEAD-2011-0037219

PATIENT
  Sex: Male

DRUGS (8)
  1. SUSTIVA [Concomitant]
     Indication: HIV INFECTION
  2. TRAMADOL [Concomitant]
  3. WARFARIN [Concomitant]
  4. STATIN [Concomitant]
     Indication: HYPERCHOLESTEROLAEMIA
  5. AMITRIPTYLINE HCL [Concomitant]
  6. EFFEXOR [Concomitant]
  7. ATRIPLA [Suspect]
     Indication: HIV INFECTION
  8. ABILIFY [Concomitant]

REACTIONS (3)
  - DRUG INTERACTION [None]
  - CD4 LYMPHOCYTES DECREASED [None]
  - VIRAL LOAD INCREASED [None]
